FAERS Safety Report 9265666 (Version 2)
Quarter: 2013Q3

REPORT INFORMATION
  Report Type: Spontaneous
  Country: US (occurrence: US)
  Receive Date: 20130501
  Receipt Date: 20130723
  Transmission Date: 20140515
  Serious: No
  Sender: FDA-Public Use
  Company Number: US-TEVA-402091USA

PATIENT
  Sex: Female

DRUGS (11)
  1. COPAXONE [Suspect]
     Route: 065
     Dates: end: 201208
  2. AMPYRA [Suspect]
     Route: 065
  3. VITAMIN D [Concomitant]
  4. FOLIC ACID [Concomitant]
  5. ASPIRIN [Concomitant]
  6. PRENATAL VITAMINS [Concomitant]
  7. COLACE [Concomitant]
  8. DHA [Concomitant]
  9. MAKENNA [Concomitant]
  10. PROCARDIA [Concomitant]
  11. BETAMETHASONE [Concomitant]

REACTIONS (1)
  - Small for dates baby [Unknown]
